FAERS Safety Report 6303414-8 (Version None)
Quarter: 2009Q3

REPORT INFORMATION
  Report Type: 
  Country: None (occurrence: None)
  Receive Date: 20090810
  Receipt Date: 20090729
  Transmission Date: 20100115
  Serious: Yes (Death, Congenital Anomaly)
  Sender: FDA-Public Use
  Company Number: CL-PFIZER INC-2006080640

PATIENT

DRUGS (1)
  1. AZULFIDINE EN-TABS [Suspect]
     Indication: COLITIS ULCERATIVE
     Dosage: 500 MG, UNK
     Route: 064
     Dates: start: 20060101

REACTIONS (4)
  - CARDIAC DISORDER [None]
  - DRUG EXPOSURE DURING PREGNANCY [None]
  - HEART DISEASE CONGENITAL [None]
  - MATERNAL DRUGS AFFECTING FOETUS [None]
